FAERS Safety Report 7071311-9 (Version None)
Quarter: 2010Q4

REPORT INFORMATION
  Report Type: 
  Country: None (occurrence: None)
  Receive Date: 20101028
  Receipt Date: 20101028
  Transmission Date: 20110411
  Serious: No
  Sender: FDA-Public Use
  Company Number: None

PATIENT
  Sex: Female

DRUGS (2)
  1. TIROSINT [Suspect]
     Indication: HYPOTHYROIDISM
     Dosage: 100MCG DAILY PO
     Route: 048
     Dates: start: 20100601, end: 20101005
  2. TIROSINT [Suspect]
     Dosage: 50MCG DAILY PO
     Route: 048
     Dates: start: 20101005, end: 20101101

REACTIONS (2)
  - MEDICATION ERROR [None]
  - PRODUCT PACKAGING ISSUE [None]
